FAERS Safety Report 21339649 (Version 1)
Quarter: 2022Q3

REPORT INFORMATION
  Report Type: Spontaneous
  Country: US (occurrence: US)
  Receive Date: 20220915
  Receipt Date: 20220915
  Transmission Date: 20221027
  Serious: No
  Sender: FDA-Public Use
  Company Number: US-SA-SAC20220914000243

PATIENT
  Age: 32 Year
  Sex: Male

DRUGS (1)
  1. DUPIXENT [Suspect]
     Active Substance: DUPILUMAB
     Dosage: 300MG,OTHER
     Route: 058

REACTIONS (4)
  - Eyelid margin crusting [Unknown]
  - Lacrimation increased [Unknown]
  - Vision blurred [Unknown]
  - Eye pruritus [Unknown]
